FAERS Safety Report 4655128-8 (Version None)
Quarter: 2005Q2

REPORT INFORMATION
  Report Type: 
  Country: None (occurrence: None)
  Receive Date: 20050506
  Receipt Date: 20050413
  Transmission Date: 20051028
  Serious: Yes (Life-Threatening, Hospitalization)
  Sender: FDA-Public Use
  Company Number: ES-BRISTOL-MYERS SQUIBB COMPANY-12938551

PATIENT
  Age: 58 Year
  Sex: Male

DRUGS (4)
  1. GLAFORNIL [Suspect]
     Indication: DIABETES MELLITUS NON-INSULIN-DEPENDENT
     Route: 048
  2. DIOVAN [Concomitant]
     Indication: HYPERTENSION
     Route: 048
  3. MANIDON [Concomitant]
     Indication: HYPERTENSION
     Route: 048
  4. LOPID [Concomitant]
     Indication: HYPERLIPIDAEMIA
     Route: 048

REACTIONS (2)
  - CARDIO-RESPIRATORY ARREST [None]
  - LACTIC ACIDOSIS [None]
